FAERS Safety Report 15281540 (Version 2)
Quarter: 2018Q3

REPORT INFORMATION
  Report Type: Spontaneous
  Country: US (occurrence: US)
  Receive Date: 20180815
  Receipt Date: 20180828
  Transmission Date: 20181010
  Serious: No
  Sender: FDA-Public Use
  Company Number: US-GILEAD-2018-0356142

PATIENT
  Sex: Female

DRUGS (2)
  1. SOLIRIS [Concomitant]
     Active Substance: ECULIZUMAB
     Route: 065
  2. EPCLUSA [Suspect]
     Active Substance: SOFOSBUVIR\VELPATASVIR
     Indication: HEPATITIS C
     Route: 065

REACTIONS (1)
  - Blood disorder [Unknown]
